FAERS Safety Report 23755211 (Version 1)
Quarter: 2024Q2

REPORT INFORMATION
  Report Type: Spontaneous
  Country: JP (occurrence: JP)
  Receive Date: 20240418
  Receipt Date: 20240418
  Transmission Date: 20240716
  Serious: Yes (Other)
  Sender: FDA-Public Use
  Company Number: JP-TAIHO-2024-003589

PATIENT
  Age: 77 Year
  Sex: Female

DRUGS (2)
  1. ABRAXANE [Suspect]
     Active Substance: PACLITAXEL
     Indication: Pancreatic carcinoma
     Dosage: NI
     Route: 041
     Dates: start: 20191002, end: 20240221
  2. GEMCITABINE HYDROCHLORIDE [Suspect]
     Active Substance: GEMCITABINE HYDROCHLORIDE
     Indication: Pancreatic carcinoma
     Dosage: NI
     Dates: start: 20191002, end: 20240221

REACTIONS (1)
  - Scleroderma-like reaction [Unknown]

NARRATIVE: CASE EVENT DATE: 20240301
